FAERS Safety Report 14297632 (Version 2)
Quarter: 2017Q4

REPORT INFORMATION
  Report Type: Spontaneous
  Country: DE (occurrence: DE)
  Receive Date: 20171218
  Receipt Date: 20171222
  Transmission Date: 20180321
  Serious: Yes (Hospitalization)
  Sender: FDA-Public Use
  Company Number: DE-GEHC-2017CSU004088

PATIENT

DRUGS (1)
  1. ACCUPAQUE [Suspect]
     Active Substance: IOHEXOL
     Indication: DYSPNOEA
     Dosage: 80 ML, SINGLE
     Route: 042
     Dates: start: 20171212, end: 20171212

REACTIONS (5)
  - Dyspnoea [Recovered/Resolved]
  - Erythema [Recovered/Resolved]
  - Visual impairment [Recovered/Resolved]
  - Vomiting [Recovered/Resolved]
  - Nausea [Recovered/Resolved]

NARRATIVE: CASE EVENT DATE: 20171212
